FAERS Safety Report 10896627 (Version 2)
Quarter: 2015Q1

REPORT INFORMATION
  Report Type: Spontaneous
  Country: JP (occurrence: JP)
  Receive Date: 20150309
  Receipt Date: 20150312
  Transmission Date: 20150721
  Serious: Yes (Death)
  Sender: FDA-Public Use
  Company Number: JP-SA-2015SA026379

PATIENT
  Age: 74 Year
  Sex: Female
  Weight: 39 kg

DRUGS (1)
  1. FABRAZYME [Suspect]
     Active Substance: AGALSIDASE BETA
     Indication: FABRY^S DISEASE
     Dosage: ON 19-FEB-2015, RECEIVED FABRAZYME 39 MG. IT WAS THE LAST DOSE OF FABRAZYME WHICH WAS RECEIVED.
     Route: 041
     Dates: start: 20131023, end: 20150219

REACTIONS (3)
  - Cerebral infarction [Fatal]
  - Dysphagia [Fatal]
  - Asphyxia [Fatal]

NARRATIVE: CASE EVENT DATE: 20150302
